FAERS Safety Report 5756040-3 (Version None)
Quarter: 2008Q2

REPORT INFORMATION
  Report Type: 
  Country: None (occurrence: None)
  Receive Date: 20080602
  Receipt Date: 20080528
  Transmission Date: 20081010
  Serious: Yes (Death, Other)
  Sender: FDA-Public Use
  Company Number: PHHY2008FR09125

PATIENT
  Age: 87 Year
  Sex: Female

DRUGS (1)
  1. EXELON [Suspect]
     Indication: DEMENTIA
     Dosage: 6 MG, BID

REACTIONS (3)
  - GENERAL PHYSICAL CONDITION ABNORMAL [None]
  - SEPSIS [None]
  - URINARY TRACT INFECTION [None]
